FAERS Safety Report 6051778-5 (Version None)
Quarter: 2009Q1

REPORT INFORMATION
  Report Type: 
  Country: None (occurrence: None)
  Receive Date: 20090121
  Receipt Date: 20090121
  Transmission Date: 20090719
  Serious: Yes (Disabling)
  Sender: FDA-Public Use
  Company Number: None

PATIENT
  Age: 50 Year
  Sex: Female
  Weight: 74.8435 kg

DRUGS (2)
  1. LEVAQUIN [Suspect]
     Indication: LUNG INFECTION
     Dosage: ONE DAILY PO
     Route: 048
     Dates: start: 20081203, end: 20081223
  2. LEVAQUIN [Suspect]
     Indication: SINUSITIS
     Dosage: ONE DAILY PO
     Route: 048
     Dates: start: 20081203, end: 20081223

REACTIONS (5)
  - ARTHRALGIA [None]
  - FATIGUE [None]
  - INSOMNIA [None]
  - MALAISE [None]
  - MUSCULOSKELETAL PAIN [None]
